FAERS Safety Report 9918629 (Version 2)
Quarter: 2014Q1

REPORT INFORMATION
  Report Type: Spontaneous
  Country: US (occurrence: US)
  Receive Date: 20140224
  Receipt Date: 20140326
  Transmission Date: 20141002
  Serious: No
  Sender: FDA-Public Use
  Company Number: US-009507513-1402USA000393

PATIENT
  Sex: Female
  Weight: 77.98 kg

DRUGS (2)
  1. NEXPLANON [Suspect]
     Indication: CONTRACEPTION
     Dosage: UNK, IN THE PATIENT^S ARM
     Route: 058
     Dates: start: 20130215, end: 20140203
  2. NEXPLANON [Suspect]
     Dosage: UNK
     Dates: start: 20140203

REACTIONS (2)
  - Vaginal haemorrhage [Not Recovered/Not Resolved]
  - Device kink [Recovered/Resolved]
